FAERS Safety Report 23965422 (Version 3)
Quarter: 2024Q4

REPORT INFORMATION
  Report Type: Report from Study
  Country: JP (occurrence: JP)
  Receive Date: 20240612
  Receipt Date: 20241129
  Transmission Date: 20250115
  Serious: Yes (Death)
  Sender: AKEBIA THERAPEUTICS
  Company Number: JP-MTPC-MTPC2024-0011720

PATIENT
  Age: 86 Year
  Sex: Female
  Weight: 36.5 kg

DRUGS (4)
  1. VADADUSTAT [Suspect]
     Active Substance: VADADUSTAT
     Indication: Nephrogenic anaemia
     Dosage: 150 MILLIGRAM, QD
     Route: 048
     Dates: start: 20211216, end: 20220112
  2. VADADUSTAT [Suspect]
     Active Substance: VADADUSTAT
     Dosage: 300 MILLIGRAM, QD
     Route: 048
     Dates: start: 20220113, end: 20220209
  3. VADADUSTAT [Suspect]
     Active Substance: VADADUSTAT
     Dosage: 150 MILLIGRAM, QD
     Route: 048
     Dates: start: 20220210, end: 20220303
  4. DARBEPOETIN ALFA [Concomitant]
     Active Substance: DARBEPOETIN ALFA
     Indication: Nephrogenic anaemia
     Dosage: 40 MICROGRAM, 1/WEEK
     Route: 042
     Dates: end: 20211211

REACTIONS (1)
  - Pneumonia aspiration [Fatal]
